FAERS Safety Report 18409502 (Version 3)
Quarter: 2025Q3

REPORT INFORMATION
  Report Type: Spontaneous
  Country: CA (occurrence: CA)
  Receive Date: 20201021
  Receipt Date: 20250812
  Transmission Date: 20251021
  Serious: Yes (Other)
  Sender: ALEXION PHARMACEUTICALS
  Company Number: 2020SF32763

PATIENT
  Age: 64 Year
  Sex: Male

DRUGS (23)
  1. ROSUVASTATIN [Suspect]
     Active Substance: ROSUVASTATIN
     Indication: Blood cholesterol increased
     Dosage: 20 MILLIGRAM, QD
     Route: 065
  2. ROSUVASTATIN [Suspect]
     Active Substance: ROSUVASTATIN
     Indication: Blood cholesterol increased
  3. OMALIZUMAB [Suspect]
     Active Substance: OMALIZUMAB
     Indication: Asthma
  4. OMALIZUMAB [Suspect]
     Active Substance: OMALIZUMAB
  5. OMALIZUMAB [Suspect]
     Active Substance: OMALIZUMAB
  6. OMALIZUMAB [Suspect]
     Active Substance: OMALIZUMAB
  7. OMALIZUMAB [Suspect]
     Active Substance: OMALIZUMAB
  8. OMALIZUMAB [Suspect]
     Active Substance: OMALIZUMAB
  9. OMALIZUMAB [Suspect]
     Active Substance: OMALIZUMAB
  10. OMALIZUMAB [Suspect]
     Active Substance: OMALIZUMAB
     Route: 065
  11. OMALIZUMAB [Suspect]
     Active Substance: OMALIZUMAB
  12. OMALIZUMAB [Suspect]
     Active Substance: OMALIZUMAB
  13. OMALIZUMAB [Suspect]
     Active Substance: OMALIZUMAB
  14. OMALIZUMAB [Suspect]
     Active Substance: OMALIZUMAB
  15. OMALIZUMAB [Suspect]
     Active Substance: OMALIZUMAB
  16. OMALIZUMAB [Suspect]
     Active Substance: OMALIZUMAB
  17. OMALIZUMAB [Suspect]
     Active Substance: OMALIZUMAB
  18. OMALIZUMAB [Suspect]
     Active Substance: OMALIZUMAB
  19. OMALIZUMAB [Suspect]
     Active Substance: OMALIZUMAB
  20. OMALIZUMAB [Suspect]
     Active Substance: OMALIZUMAB
  21. OMALIZUMAB [Suspect]
     Active Substance: OMALIZUMAB
  22. OMALIZUMAB [Suspect]
     Active Substance: OMALIZUMAB
  23. OMALIZUMAB [Suspect]
     Active Substance: OMALIZUMAB

REACTIONS (36)
  - Hypersensitivity [Unknown]
  - Abdominal pain [Unknown]
  - Fatigue [Unknown]
  - Headache [Unknown]
  - Pancreatitis acute [Recovered/Resolved]
  - Swelling face [Unknown]
  - Asthma [Unknown]
  - Back pain [Unknown]
  - Bronchospasm [Unknown]
  - Cough [Unknown]
  - Diarrhoea [Unknown]
  - Discomfort [Unknown]
  - Dyspnoea [Recovering/Resolving]
  - Ear infection [Recovering/Resolving]
  - Fall [Unknown]
  - Gait disturbance [Recovering/Resolving]
  - Heart rate increased [Unknown]
  - Hepatic cirrhosis [Unknown]
  - Hypertension [Not Recovered/Not Resolved]
  - Nasal congestion [Unknown]
  - Nasal discharge discolouration [Unknown]
  - Nasopharyngitis [Recovered/Resolved]
  - Pain [Not Recovered/Not Resolved]
  - Plantar fasciitis [Unknown]
  - Pneumonia [Recovering/Resolving]
  - Productive cough [Unknown]
  - Respiratory disorder [Unknown]
  - Respiratory tract congestion [Recovering/Resolving]
  - Rhinorrhoea [Recovering/Resolving]
  - Road traffic accident [Unknown]
  - Sinus pain [Recovering/Resolving]
  - Sinusitis [Unknown]
  - Spinal fracture [Unknown]
  - Weight decreased [Unknown]
  - Oropharyngeal pain [Recovering/Resolving]
  - Inappropriate schedule of product administration [Unknown]

NARRATIVE: CASE EVENT DATE: 20130717
